FAERS Safety Report 6204727-0 (Version None)
Quarter: 2009Q2

REPORT INFORMATION
  Report Type: 
  Country: None (occurrence: None)
  Receive Date: 20090527
  Receipt Date: 20090515
  Transmission Date: 20091009
  Serious: Yes (Hospitalization)
  Sender: FDA-Public Use
  Company Number: GB-PFIZER INC-2009214286

PATIENT

DRUGS (2)
  1. NEURONTIN [Suspect]
     Indication: NEURALGIA
     Dosage: 600 MG, 3X/DAY
  2. SALAZOPYRIN [Suspect]
     Dosage: 1 G, 3X/DAY

REACTIONS (2)
  - SURGERY [None]
  - VOMITING [None]
